FAERS Safety Report 9515754 (Version 1)
Quarter: 2013Q3

REPORT INFORMATION
  Report Type: Spontaneous
  Country: DE (occurrence: DE)
  Receive Date: 20130911
  Receipt Date: 20130911
  Transmission Date: 20140515
  Serious: Yes (Life-Threatening, Other)
  Sender: FDA-Public Use
  Company Number: DE-PFIZER INC-2013260765

PATIENT
  Age: 22 Year
  Sex: Female

DRUGS (1)
  1. TREVILOR RETARD [Suspect]
     Indication: DEPRESSION
     Dosage: 75 MG, 1X/DAY

REACTIONS (5)
  - Renal failure [Unknown]
  - Convulsion [Unknown]
  - Coma [Unknown]
  - Rhabdomyolysis [Unknown]
  - Drug level increased [Unknown]
